FAERS Safety Report 7959092-5 (Version None)
Quarter: 2011Q4

REPORT INFORMATION
  Report Type: 
  Country: None (occurrence: None)
  Receive Date: 20111206
  Receipt Date: 20111206
  Transmission Date: 20120403
  Serious: Yes (Disabling)
  Sender: FDA-Public Use
  Company Number: None

PATIENT
  Sex: Female
  Weight: 46.72 kg

DRUGS (1)
  1. FOSAMAX [Suspect]
     Indication: OSTEOPOROSIS
     Dosage: FULL
     Route: 048
     Dates: start: 20050510, end: 20090415

REACTIONS (8)
  - JOINT STIFFNESS [None]
  - PAIN [None]
  - LOOSE TOOTH [None]
  - DENTAL CARIES [None]
  - PERIODONTAL DISEASE [None]
  - HYPOAESTHESIA [None]
  - ARTHRALGIA [None]
  - FOOT FRACTURE [None]
